FAERS Safety Report 4805917-1 (Version None)
Quarter: 2005Q4

REPORT INFORMATION
  Report Type: 
  Country: None (occurrence: None)
  Receive Date: 20051018
  Receipt Date: 20051011
  Transmission Date: 20060501
  Serious: Yes (Hospitalization)
  Sender: FDA-Public Use
  Company Number: RS005536-USA

PATIENT
  Age: 71 Year
  Sex: Female
  Weight: 68.5 kg

DRUGS (1)
  1. ACIPHEX [Suspect]
     Indication: GASTROOESOPHAGEAL REFLUX DISEASE
     Dosage: 20 MG, ORAL
     Route: 048
     Dates: start: 20010101

REACTIONS (4)
  - GALLBLADDER DISORDER [None]
  - LIVER DISORDER [None]
  - PANCREATIC DISORDER [None]
  - REFUSAL OF TREATMENT BY RELATIVE [None]
